FAERS Safety Report 5799149-0 (Version None)
Quarter: 2008Q3

REPORT INFORMATION
  Report Type: 
  Country: None (occurrence: None)
  Receive Date: 20080701
  Receipt Date: 20080623
  Transmission Date: 20090109
  Serious: Yes (Other)
  Sender: FDA-Public Use
  Company Number: 235671J08USA

PATIENT
  Age: 61 Year
  Sex: Female
  Weight: 90.7194 kg

DRUGS (3)
  1. REBIF [Suspect]
     Indication: MULTIPLE SCLEROSIS
     Dosage: 44 MCG, 3 IN 1 WEEKS, SUBCUTANEOUS
     Route: 058
     Dates: start: 20080125, end: 20080101
  2. NEURONTIN [Concomitant]
  3. PROVIGIL [Concomitant]

REACTIONS (4)
  - BRAIN NEOPLASM [None]
  - HEADACHE [None]
  - NEOPLASM PROGRESSION [None]
  - PITUITARY TUMOUR [None]
